FAERS Safety Report 14229007 (Version 1)
Quarter: 2017Q4

REPORT INFORMATION
  Report Type: Spontaneous
  Country: US (occurrence: US)
  Receive Date: 20171128
  Receipt Date: 20171128
  Transmission Date: 20180321
  Serious: Yes (Other)
  Sender: FDA-Public Use
  Company Number: US-AUROBINDO-AUR-APL-2017-43722

PATIENT
  Age: 59 Year
  Sex: Female

DRUGS (8)
  1. IBRUTINIB [Suspect]
     Active Substance: IBRUTINIB
     Indication: WALDENSTROM^S MACROGLOBULINAEMIA
     Dosage: 420 MG, DAILY
  2. VALACYCLOVIR [Concomitant]
     Active Substance: VALACYCLOVIR HYDROCHLORIDE
     Indication: PRODUCT USED FOR UNKNOWN INDICATION
  3. FAMOTIDINE. [Concomitant]
     Active Substance: FAMOTIDINE
     Indication: PRODUCT USED FOR UNKNOWN INDICATION
  4. ACETAMINOPHEN. [Suspect]
     Active Substance: ACETAMINOPHEN
     Indication: PRODUCT USED FOR UNKNOWN INDICATION
     Dosage: UNK
  5. IBRUTINIB [Suspect]
     Active Substance: IBRUTINIB
     Dosage: 140 MG, DAILY
  6. DICYCLOMINE                        /00068601/ [Concomitant]
     Active Substance: DICYCLOMINE HYDROCHLORIDE
     Indication: PRODUCT USED FOR UNKNOWN INDICATION
  7. TEMAZEPAM. [Concomitant]
     Active Substance: TEMAZEPAM
     Indication: PRODUCT USED FOR UNKNOWN INDICATION
  8. IBRUTINIB [Suspect]
     Active Substance: IBRUTINIB
     Dosage: 280 UNK, UNK

REACTIONS (6)
  - Somnolence [Recovered/Resolved]
  - Confusional state [Recovered/Resolved]
  - Acute hepatic failure [Recovered/Resolved]
  - Ammonia increased [Recovered/Resolved]
  - Jaundice [Recovered/Resolved]
  - Pruritus [Unknown]
